FAERS Safety Report 7395291-1 (Version None)
Quarter: 2011Q1

REPORT INFORMATION
  Report Type: 
  Country: None (occurrence: None)
  Receive Date: 20110331
  Receipt Date: 20110331
  Transmission Date: 20110831
  Serious: No
  Sender: FDA-Public Use
  Company Number: None

PATIENT
  Sex: Male

DRUGS (4)
  1. PRILOSEC OTC [Suspect]
     Indication: VOMITING
  2. OMEPRAZOLE [Suspect]
     Indication: VOMITING
  3. OMEPRAZOLE [Suspect]
     Indication: RASH
  4. OMEPRAZOLE [Suspect]
     Indication: DIARRHOEA

REACTIONS (4)
  - VOMITING [None]
  - DIARRHOEA [None]
  - RASH [None]
  - PRODUCT QUALITY ISSUE [None]
